FAERS Safety Report 6074690-4 (Version None)
Quarter: 2009Q1

REPORT INFORMATION
  Report Type: 
  Country: None (occurrence: None)
  Receive Date: 20090209
  Receipt Date: 20090209
  Transmission Date: 20090719
  Serious: Yes (Other)
  Sender: FDA-Public Use
  Company Number: None

PATIENT
  Sex: Male
  Weight: 70.3075 kg

DRUGS (3)
  1. SPIRIVA [Suspect]
     Indication: CHRONIC OBSTRUCTIVE PULMONARY DISEASE
     Dosage: ONCE PER DAY INHALER
     Route: 055
  2. FORADIL [Suspect]
     Dosage: TWICE PER DAY INHALER
     Route: 055
  3. ASMANEX TWISTHALER [Suspect]
     Dosage: TWICE PER DAY INHALER
     Route: 055

REACTIONS (1)
  - PROSTATIC SPECIFIC ANTIGEN ABNORMAL [None]
